FAERS Safety Report 14108832 (Version 2)
Quarter: 2018Q1

REPORT INFORMATION
  Report Type: Report from Study
  Country: JP (occurrence: JP)
  Receive Date: 20171019
  Receipt Date: 20180202
  Transmission Date: 20180508
  Serious: Yes (Hospitalization)
  Sender: FDA-Public Use
  Company Number: JP-ELI_LILLY_AND_COMPANY-JP201710006312

PATIENT
  Age: 71 Year
  Sex: Male
  Weight: 79 kg

DRUGS (14)
  1. TAMBOCOR [Concomitant]
     Active Substance: FLECAINIDE ACETATE
     Dosage: UNK
     Route: 048
  2. EPADEL                             /01682401/ [Concomitant]
     Active Substance: ICOSAPENT
     Dosage: UNK
     Route: 048
  3. MICARDIS [Concomitant]
     Active Substance: TELMISARTAN
     Dosage: UNK
     Route: 048
  4. PARIET [Concomitant]
     Active Substance: RABEPRAZOLE SODIUM
     Dosage: UNK
     Route: 048
  5. TELMISARTAN. [Concomitant]
     Active Substance: TELMISARTAN
  6. AMLODIPINE                         /00972402/ [Concomitant]
     Active Substance: AMLODIPINE BESYLATE
     Dosage: UNK
     Route: 048
  7. BAYASPIRIN [Concomitant]
     Active Substance: ASPIRIN
     Dosage: UNK
     Route: 048
  8. SODIUM RABEPRAZOLE [Concomitant]
     Active Substance: RABEPRAZOLE SODIUM
     Dosage: 100 MG, UNK
     Route: 065
  9. ROSUVASTATIN                       /01588602/ [Concomitant]
     Active Substance: ROSUVASTATIN CALCIUM
  10. PRASUGREL HYDROCHLORIDE [Suspect]
     Active Substance: PRASUGREL HYDROCHLORIDE
     Indication: ANGINA UNSTABLE
     Dosage: 3.75 MG, DAILY
     Route: 048
     Dates: start: 20170127
  11. HEPARIN [Concomitant]
     Active Substance: HEPARIN SODIUM
     Dosage: 5000 IU, UNK
     Route: 065
  12. ZETIA [Concomitant]
     Active Substance: EZETIMIBE
     Dosage: UNK
     Route: 048
  13. ASPIRIN                            /00002701/ [Concomitant]
     Active Substance: ASPIRIN
     Dosage: 100 MG, UNK
     Route: 065
  14. CRESTOR [Concomitant]
     Active Substance: ROSUVASTATIN CALCIUM
     Dosage: UNK
     Route: 048

REACTIONS (5)
  - Pain in extremity [Recovering/Resolving]
  - Arteriosclerosis [Not Recovered/Not Resolved]
  - Fall [Unknown]
  - Thrombotic cerebral infarction [Not Recovered/Not Resolved]
  - Spinal deformity [Unknown]

NARRATIVE: CASE EVENT DATE: 20170131
